FAERS Safety Report 4856112-1 (Version None)
Quarter: 2005Q4

REPORT INFORMATION
  Report Type: 
  Country: None (occurrence: None)
  Receive Date: 20051216
  Receipt Date: 20051005
  Transmission Date: 20060501
  Serious: Yes (Death, Hospitalization, Disabling)
  Sender: FDA-Public Use
  Company Number: US-MERCK-0510USA04259

PATIENT
  Age: 75 Year
  Sex: Male
  Weight: 95 kg

DRUGS (9)
  1. VIOXX [Suspect]
     Indication: ARTHRITIS
     Route: 048
     Dates: start: 20010328, end: 20030831
  2. VIOXX [Suspect]
     Route: 048
     Dates: start: 20010328, end: 20030831
  3. VIOXX [Suspect]
     Route: 048
     Dates: start: 20010328, end: 20030831
  4. VIOXX [Suspect]
     Route: 048
     Dates: start: 20010328, end: 20030831
  5. ASPIRIN [Concomitant]
     Route: 065
  6. VIOXX [Suspect]
     Indication: BACK PAIN
     Route: 048
     Dates: start: 20010328, end: 20030831
  7. VIOXX [Suspect]
     Route: 048
     Dates: start: 20010328, end: 20030831
  8. VIOXX [Suspect]
     Route: 048
     Dates: start: 20010328, end: 20030831
  9. VIOXX [Suspect]
     Route: 048
     Dates: start: 20010328, end: 20030831

REACTIONS (3)
  - ACUTE MYOCARDIAL INFARCTION [None]
  - CEREBROVASCULAR ACCIDENT [None]
  - GENERAL PHYSICAL HEALTH DETERIORATION [None]
